FAERS Safety Report 4901680-4 (Version None)
Quarter: 2006Q1

REPORT INFORMATION
  Report Type: 
  Country: None (occurrence: None)
  Receive Date: 20060206
  Receipt Date: 20051024
  Transmission Date: 20060701
  Serious: Yes (Other)
  Sender: FDA-Public Use
  Company Number: US-BRISTOL-MYERS SQUIBB COMPANY-13154877

PATIENT
  Age: 34 Year
  Sex: Female
  Weight: 89 kg

DRUGS (4)
  1. TAXOL [Suspect]
     Indication: BREAST CANCER
     Route: 042
     Dates: start: 20051017
  2. BENADRYL [Concomitant]
     Indication: PREMEDICATION
     Route: 042
  3. DEXAMETHASONE TAB [Concomitant]
     Indication: PREMEDICATION
     Route: 042
  4. PEPCID [Concomitant]
     Indication: PREMEDICATION
     Route: 042

REACTIONS (8)
  - BACK PAIN [None]
  - COLD SWEAT [None]
  - COMA [None]
  - FEELING HOT [None]
  - FLUSHING [None]
  - HEADACHE [None]
  - PALLOR [None]
  - PULSE ABSENT [None]
